FAERS Safety Report 6787405-9 (Version None)
Quarter: 2010Q2

REPORT INFORMATION
  Report Type: 
  Country: None (occurrence: None)
  Receive Date: 20100623
  Receipt Date: 20070424
  Transmission Date: 20101027
  Serious: No
  Sender: FDA-Public Use
  Company Number: US-PFIZER INC-2007017873

PATIENT
  Sex: Male

DRUGS (1)
  1. NICOTROL [Suspect]
     Indication: SMOKING CESSATION THERAPY
     Route: 045
     Dates: start: 20070211

REACTIONS (6)
  - BURNING SENSATION [None]
  - COUGH [None]
  - DYSGEUSIA [None]
  - DYSPEPSIA [None]
  - POSTNASAL DRIP [None]
  - RHINORRHOEA [None]
